FAERS Safety Report 11671226 (Version 1)
Quarter: 2015Q4

REPORT INFORMATION
  Report Type: Spontaneous
  Country: US (occurrence: US)
  Receive Date: 20151027
  Receipt Date: 20151027
  Transmission Date: 20160304
  Serious: No
  Sender: FDA-Public Use
  Company Number: US-ELI_LILLY_AND_COMPANY-US201005006173

PATIENT
  Age: 35 Year
  Sex: Female

DRUGS (1)
  1. FORTEO [Suspect]
     Active Substance: TERIPARATIDE
     Indication: OSTEONECROSIS
     Dosage: 20 UG, DAILY (1/D)
     Dates: start: 20100520

REACTIONS (11)
  - Nausea [Recovering/Resolving]
  - Vomiting [Unknown]
  - Fall [Unknown]
  - Eating disorder [Not Recovered/Not Resolved]
  - Urine output decreased [Unknown]
  - Feeling abnormal [Unknown]
  - Pain [Unknown]
  - Off label use [Unknown]
  - Dizziness [Recovering/Resolving]
  - Balance disorder [Unknown]
  - Urinary incontinence [Unknown]

NARRATIVE: CASE EVENT DATE: 20100520
